FAERS Safety Report 22202819 (Version 1)
Quarter: 2023Q2

REPORT INFORMATION
  Report Type: Spontaneous
  Country: US (occurrence: None)
  Receive Date: 20230412
  Receipt Date: 20230412
  Transmission Date: 20230722
  Serious: No
  Sender: FDA-Public Use
  Company Number: None

PATIENT
  Age: 31 Year
  Sex: Female
  Weight: 64.8 kg

DRUGS (1)
  1. ESCITALOPRAM OXALATE [Suspect]
     Active Substance: ESCITALOPRAM OXALATE
     Indication: Anxiety
     Dosage: 1 TABLET AT BEDTIME ORAL;?
     Route: 048
     Dates: start: 20230401

REACTIONS (2)
  - Ear discomfort [None]
  - Product quality issue [None]

NARRATIVE: CASE EVENT DATE: 20230401
